FAERS Safety Report 15623779 (Version 1)
Quarter: 2018Q4

REPORT INFORMATION
  Report Type: Spontaneous
  Country: US (occurrence: US)
  Receive Date: 20181115
  Receipt Date: 20181115
  Transmission Date: 20190205
  Serious: Yes (Death, Hospitalization)
  Sender: FDA-Public Use
  Company Number: US-TEVA-2018-US-974287

PATIENT
  Age: 56 Year
  Sex: Male

DRUGS (4)
  1. AMIODARONE [Suspect]
     Active Substance: AMIODARONE
     Indication: ATRIAL FLUTTER
     Dosage: 691.2 MILLIGRAM DAILY;
     Route: 041
  2. PHENYTOIN. [Concomitant]
     Active Substance: PHENYTOIN
     Indication: SEIZURE
     Route: 065
  3. PHENOBARBITONE [Concomitant]
     Active Substance: PHENOBARBITAL
     Indication: SEIZURE
     Route: 065
  4. DILTIAZEM. [Suspect]
     Active Substance: DILTIAZEM
     Indication: ATRIAL FLUTTER
     Dosage: IV DRIP
     Route: 041

REACTIONS (6)
  - Multiple organ dysfunction syndrome [Fatal]
  - Ischaemic hepatitis [Fatal]
  - Acute hepatic failure [Fatal]
  - Coagulopathy [Unknown]
  - Cardiac arrest [Fatal]
  - Drug ineffective [Unknown]
